FAERS Safety Report 9074414 (Version 1)
Quarter: 2013Q1

REPORT INFORMATION
  Report Type: Report from Study
  Country: US (occurrence: US)
  Receive Date: 20130128
  Receipt Date: 20130128
  Transmission Date: 20140127
  Serious: No
  Sender: FDA-Public Use
  Company Number: US-ABBOTT-12P-163-0917146-00

PATIENT
  Sex: Male

DRUGS (1)
  1. HUMIRA 40 MG/0.8 ML PEN [Suspect]
     Indication: PSORIASIS
     Route: 058
     Dates: start: 201202

REACTIONS (7)
  - Groin pain [Unknown]
  - Erythema [Unknown]
  - Fungal infection [Unknown]
  - Psoriasis [Unknown]
  - Skin exfoliation [Unknown]
  - Drug ineffective [Unknown]
  - Drug dose omission [Unknown]
